FAERS Safety Report 25185584 (Version 1)
Quarter: 2025Q2

REPORT INFORMATION
  Report Type: Spontaneous
  Country: DE (occurrence: DE)
  Receive Date: 20250410
  Receipt Date: 20250410
  Transmission Date: 20250716
  Serious: Yes (Disabling, Other)
  Sender: MYLAN
  Company Number: DE-NAPPMUNDI-GBR-2025-0123237

PATIENT
  Age: 55 Year
  Sex: Male
  Weight: 100 kg

DRUGS (24)
  1. PREGABALIN [Suspect]
     Active Substance: PREGABALIN
     Indication: Restless legs syndrome
     Dosage: 450 MILLIGRAM, DAILY
     Dates: start: 2015
  2. PREGABALIN [Suspect]
     Active Substance: PREGABALIN
     Dosage: 450 MILLIGRAM, DAILY
     Route: 065
     Dates: start: 2015
  3. PREGABALIN [Suspect]
     Active Substance: PREGABALIN
     Dosage: 450 MILLIGRAM, DAILY
     Route: 065
     Dates: start: 2015
  4. PREGABALIN [Suspect]
     Active Substance: PREGABALIN
     Dosage: 450 MILLIGRAM, DAILY
     Dates: start: 2015
  5. PRAMIPEXOLE [Suspect]
     Active Substance: PRAMIPEXOLE
     Indication: Restless legs syndrome
     Dosage: BID, 2 X DAILY
     Dates: start: 2015
  6. PRAMIPEXOLE [Suspect]
     Active Substance: PRAMIPEXOLE
     Dosage: BID, 2 X DAILY
     Route: 065
     Dates: start: 2015
  7. PRAMIPEXOLE [Suspect]
     Active Substance: PRAMIPEXOLE
     Dosage: BID, 2 X DAILY
     Route: 065
     Dates: start: 2015
  8. PRAMIPEXOLE [Suspect]
     Active Substance: PRAMIPEXOLE
     Dosage: BID, 2 X DAILY
     Dates: start: 2015
  9. NALOXONE HYDROCHLORIDE\OXYCODONE HYDROCHLORIDE [Suspect]
     Active Substance: NALOXONE HYDROCHLORIDE\OXYCODONE HYDROCHLORIDE
     Indication: Pain
     Dosage: QD, 50-60 MG PER DAY
     Dates: start: 2015
  10. NALOXONE HYDROCHLORIDE\OXYCODONE HYDROCHLORIDE [Suspect]
     Active Substance: NALOXONE HYDROCHLORIDE\OXYCODONE HYDROCHLORIDE
     Dosage: QD, 50-60 MG PER DAY
     Route: 065
     Dates: start: 2015
  11. NALOXONE HYDROCHLORIDE\OXYCODONE HYDROCHLORIDE [Suspect]
     Active Substance: NALOXONE HYDROCHLORIDE\OXYCODONE HYDROCHLORIDE
     Dosage: QD, 50-60 MG PER DAY
     Route: 065
     Dates: start: 2015
  12. NALOXONE HYDROCHLORIDE\OXYCODONE HYDROCHLORIDE [Suspect]
     Active Substance: NALOXONE HYDROCHLORIDE\OXYCODONE HYDROCHLORIDE
     Dosage: QD, 50-60 MG PER DAY
     Dates: start: 2015
  13. CANNABIS SATIVA SUBSP. INDICA TOP [Suspect]
     Active Substance: CANNABIS SATIVA SUBSP. INDICA TOP
     Indication: Restless legs syndrome
     Dosage: 3 GRAM, QD, 3 GRAM, DAILY
     Dates: start: 2017
  14. CANNABIS SATIVA SUBSP. INDICA TOP [Suspect]
     Active Substance: CANNABIS SATIVA SUBSP. INDICA TOP
     Dosage: 3 GRAM, QD, 3 GRAM, DAILY
     Route: 065
     Dates: start: 2017
  15. CANNABIS SATIVA SUBSP. INDICA TOP [Suspect]
     Active Substance: CANNABIS SATIVA SUBSP. INDICA TOP
     Dosage: 3 GRAM, QD, 3 GRAM, DAILY
     Route: 065
     Dates: start: 2017
  16. CANNABIS SATIVA SUBSP. INDICA TOP [Suspect]
     Active Substance: CANNABIS SATIVA SUBSP. INDICA TOP
     Dosage: 3 GRAM, QD, 3 GRAM, DAILY
     Dates: start: 2017
  17. .DELTA.9-TETRAHYDROCANNABINOL\CANNABIDIOL\HERBALS [Suspect]
     Active Substance: .DELTA.9-TETRAHYDROCANNABINOL\CANNABIDIOL\HERBALS
     Indication: Restless legs syndrome
     Dosage: 5 MILLILITER, QD, 5 MILLILITER, DAILY
     Dates: start: 2017
  18. .DELTA.9-TETRAHYDROCANNABINOL\CANNABIDIOL\HERBALS [Suspect]
     Active Substance: .DELTA.9-TETRAHYDROCANNABINOL\CANNABIDIOL\HERBALS
     Dosage: 5 MILLILITER, QD, 5 MILLILITER, DAILY
     Route: 065
     Dates: start: 2017
  19. .DELTA.9-TETRAHYDROCANNABINOL\CANNABIDIOL\HERBALS [Suspect]
     Active Substance: .DELTA.9-TETRAHYDROCANNABINOL\CANNABIDIOL\HERBALS
     Dosage: 5 MILLILITER, QD, 5 MILLILITER, DAILY
     Route: 065
     Dates: start: 2017
  20. .DELTA.9-TETRAHYDROCANNABINOL\CANNABIDIOL\HERBALS [Suspect]
     Active Substance: .DELTA.9-TETRAHYDROCANNABINOL\CANNABIDIOL\HERBALS
     Dosage: 5 MILLILITER, QD, 5 MILLILITER, DAILY
     Dates: start: 2017
  21. HEROIN [Concomitant]
     Active Substance: DIAMORPHINE
     Indication: Product used for unknown indication
  22. HEROIN [Concomitant]
     Active Substance: DIAMORPHINE
     Route: 065
  23. HEROIN [Concomitant]
     Active Substance: DIAMORPHINE
     Route: 065
  24. HEROIN [Concomitant]
     Active Substance: DIAMORPHINE

REACTIONS (19)
  - Epilepsy [Not Recovered/Not Resolved]
  - Abscess [Not Recovered/Not Resolved]
  - Photosensitivity reaction [Not Recovered/Not Resolved]
  - Ageusia [Not Recovered/Not Resolved]
  - Dependence [Not Recovered/Not Resolved]
  - Osteonecrosis of jaw [Not Recovered/Not Resolved]
  - Metastases to lymph nodes [Unknown]
  - Disability [Unknown]
  - Testis cancer [Unknown]
  - Polyneuropathy [Unknown]
  - Drug dependence [Unknown]
  - Teeth brittle [Unknown]
  - Muscle spasticity [Unknown]
  - Restless legs syndrome [Unknown]
  - Impaired quality of life [Unknown]
  - Depression [Unknown]
  - Pain [Unknown]
  - Headache [Unknown]
  - Vomiting [Unknown]

NARRATIVE: CASE EVENT DATE: 20170101
